FAERS Safety Report 21093944 (Version 1)
Quarter: 2022Q3

REPORT INFORMATION
  Report Type: Spontaneous
  Country: PT (occurrence: PT)
  Receive Date: 20220718
  Receipt Date: 20220718
  Transmission Date: 20221026
  Serious: Yes (Other)
  Sender: FDA-Public Use
  Company Number: PT-MYLANLABS-2022M1079174

PATIENT
  Age: 3 Decade
  Sex: Male

DRUGS (7)
  1. RISPERIDONE [Suspect]
     Active Substance: RISPERIDONE
     Indication: Schizophrenia
     Dosage: 8 MILLIGRAM, QD
     Route: 065
  2. OLANZAPINE [Suspect]
     Active Substance: OLANZAPINE
     Indication: Schizophrenia
     Dosage: 30 MILLIGRAM, QD
     Route: 065
  3. FLURAZEPAM [Suspect]
     Active Substance: FLURAZEPAM HYDROCHLORIDE
     Indication: Schizophrenia
     Dosage: 30 MILLIGRAM
     Route: 065
  4. CLOZAPINE [Suspect]
     Active Substance: CLOZAPINE
     Indication: Schizophrenia
     Dosage: UNK
     Route: 065
  5. CLOZAPINE [Suspect]
     Active Substance: CLOZAPINE
     Dosage: 500 MILLIGRAM, QD; TITRATED UP TO 500 MG PER DAY OVER A YEAR.
     Route: 065
  6. CLOZAPINE [Suspect]
     Active Substance: CLOZAPINE
     Dosage: 800 MILLIGRAM, QD, INCREASED TO 800 MG/DAY
     Route: 065
  7. AMISULPRIDE [Suspect]
     Active Substance: AMISULPRIDE
     Indication: Schizophrenia
     Dosage: 50 MILLIGRAM, QD
     Route: 065

REACTIONS (1)
  - Drug ineffective [Unknown]
